FAERS Safety Report 9296815 (Version 1)
Quarter: 2013Q2

REPORT INFORMATION
  Report Type: Spontaneous
  Country: US (occurrence: US)
  Receive Date: 20130517
  Receipt Date: 20130517
  Transmission Date: 20140414
  Serious: No
  Sender: FDA-Public Use
  Company Number: US-009507513-1305USA009564

PATIENT
  Age: 62 Year
  Sex: Female

DRUGS (3)
  1. SAPHRIS [Suspect]
     Indication: BIPOLAR DISORDER
     Dosage: 5 MG, QD
     Route: 060
  2. SAPHRIS [Suspect]
     Dosage: 10 MG, QD
     Route: 060
  3. LEXAPRO [Concomitant]

REACTIONS (1)
  - Hypoaesthesia oral [Recovering/Resolving]
